FAERS Safety Report 11011435 (Version 1)
Quarter: 2015Q2

REPORT INFORMATION
  Report Type: Spontaneous
  Country: CN (occurrence: CN)
  Receive Date: 20150410
  Receipt Date: 20150410
  Transmission Date: 20150821
  Serious: Yes (Other)
  Sender: FDA-Public Use
  Company Number: CN-TAKEDA-2015MPI002232

PATIENT

DRUGS (5)
  1. VELCADE [Suspect]
     Active Substance: BORTEZOMIB
     Indication: T-CELL LYMPHOMA
     Dosage: 1.6 MG/M2, UNK
     Route: 042
     Dates: start: 20070625
  2. VINCRISTINE [Suspect]
     Active Substance: VINCRISTINE
     Indication: T-CELL LYMPHOMA
     Dosage: 2 MG, QD
     Route: 065
     Dates: start: 20070624
  3. PIRARUBICIN [Suspect]
     Active Substance: PIRARUBICIN
     Indication: T-CELL LYMPHOMA
     Dosage: 70 MG, QD
     Route: 065
     Dates: start: 20070624
  4. DEXAMETHASONE. [Suspect]
     Active Substance: DEXAMETHASONE
     Indication: T-CELL LYMPHOMA
     Dosage: DOSAGE FORM: UNKNOWN
     Route: 042
     Dates: start: 20070624
  5. CYCLOPHOSPHAMIDE. [Suspect]
     Active Substance: CYCLOPHOSPHAMIDE
     Indication: T-CELL LYMPHOMA
     Dosage: 1.2 G, QD
     Route: 065
     Dates: start: 20140624

REACTIONS (2)
  - Agranulocytosis [Recovering/Resolving]
  - Gastrointestinal infection [Recovering/Resolving]
